FAERS Safety Report 12262196 (Version 2)
Quarter: 2016Q3

REPORT INFORMATION
  Report Type: Spontaneous
  Country: GB (occurrence: GB)
  Receive Date: 20160413
  Receipt Date: 20160721
  Transmission Date: 20161109
  Serious: Yes (Hospitalization, Other)
  Sender: FDA-Public Use
  Company Number: GB-GLAXOSMITHKLINE-GB2016GSK049203

PATIENT

DRUGS (1)
  1. CEFUROXIME. [Suspect]
     Active Substance: CEFUROXIME
     Indication: ANTIBIOTIC PROPHYLAXIS
     Dosage: 1.5 G, UNK
     Route: 064
     Dates: start: 20151113, end: 20151113

REACTIONS (2)
  - Foetal exposure during pregnancy [Unknown]
  - Brain hypoxia [Unknown]
